FAERS Safety Report 21755601 (Version 2)
Quarter: 2023Q1

REPORT INFORMATION
  Report Type: Spontaneous
  Country: FI (occurrence: FI)
  Receive Date: 20221220
  Receipt Date: 20230105
  Transmission Date: 20230417
  Serious: Yes (Hospitalization)
  Sender: FDA-Public Use
  Company Number: FI-TEVA-2022-FI-2838314

PATIENT
  Age: 60 Year
  Sex: Female

DRUGS (12)
  1. OXAZEPAM [Suspect]
     Active Substance: OXAZEPAM
     Indication: Mixed anxiety and depressive disorder
     Dosage: 1800 MILLIGRAM DAILY; ADMINISTERED DAILY DOSE OF 60 TABLETS OF 30 MG FORMULATION
     Route: 065
  2. OXAZEPAM [Suspect]
     Active Substance: OXAZEPAM
     Dosage: 600 MILLIGRAM DAILY;
     Route: 065
  3. OXAZEPAM [Suspect]
     Active Substance: OXAZEPAM
     Dosage: 270 MILLIGRAM DAILY; ADDITIONAL INFO: MISUSE,OVERDOSE; THERAPY WAS INITIALLY REDUCED TO 30MG DAILY A
     Route: 065
  4. DIAZEPAM [Suspect]
     Active Substance: DIAZEPAM
     Indication: Mixed anxiety and depressive disorder
     Dosage: 30 MG THRICE IN A DAY , 90 MG
     Route: 065
  5. DIAZEPAM [Suspect]
     Active Substance: DIAZEPAM
     Dosage: TAPERED DOSE , 50 MG
     Route: 065
  6. SERTRALINE [Suspect]
     Active Substance: SERTRALINE HYDROCHLORIDE
     Indication: Mixed anxiety and depressive disorder
     Route: 065
     Dates: start: 202005
  7. VENLAFAXINE [Suspect]
     Active Substance: VENLAFAXINE HYDROCHLORIDE
     Indication: Mixed anxiety and depressive disorder
     Route: 065
  8. ACETAMINOPHEN AND CODEINE [Suspect]
     Active Substance: ACETAMINOPHEN\CODEINE PHOSPHATE
     Indication: Headache
     Dosage: ADMINISTERED MORE THAN DOUBLE THE PRESCRIBED AMOUNT , PARACETAMOL: 3000 MG; CODEINE: 180 MG; ADDITIO
     Route: 065
  9. LEVETIRACETAM [Concomitant]
     Active Substance: LEVETIRACETAM
     Indication: Seizure prophylaxis
     Dosage: 1000 MILLIGRAM DAILY;
     Route: 065
  10. LEVOMEPROMAZINE [Concomitant]
     Active Substance: LEVOMEPROMAZINE
     Indication: Mixed anxiety and depressive disorder
     Dosage: 50 MG
     Route: 065
  11. LEVOMEPROMAZINE [Concomitant]
     Active Substance: LEVOMEPROMAZINE
     Indication: Sleep disorder
  12. CLONIDINE [Concomitant]
     Active Substance: CLONIDINE
     Indication: Prophylaxis
     Dosage: DOSAGE: ADMINISTERED THREE TIMES PER DAY , 75 MCG
     Route: 065

REACTIONS (4)
  - Anxiety [Recovered/Resolved]
  - Withdrawal syndrome [Unknown]
  - Intentional product misuse [Unknown]
  - Intentional overdose [Unknown]

NARRATIVE: CASE EVENT DATE: 20200501
